FAERS Safety Report 22015378 (Version 2)
Quarter: 2023Q2

REPORT INFORMATION
  Report Type: Spontaneous
  Country: US (occurrence: US)
  Receive Date: 20230221
  Receipt Date: 20230515
  Transmission Date: 20230721
  Serious: Yes (Other)
  Sender: FDA-Public Use
  Company Number: US-SA-SAC20230220000490

PATIENT
  Age: 12 Year
  Sex: Male

DRUGS (6)
  1. ELOCTATE [Suspect]
     Active Substance: EFMOROCTOCOG ALFA
     Indication: Factor VIII deficiency
     Dosage: 500 UNITES, 700 UNITS, TWICE WEEKLY
     Route: 042
     Dates: start: 202211
  2. ELOCTATE [Suspect]
     Active Substance: EFMOROCTOCOG ALFA
     Indication: Factor VIII deficiency
     Dosage: 500 UNITES, 700 UNITS, TWICE WEEKLY
     Route: 042
     Dates: start: 202211
  3. ELOCTATE [Suspect]
     Active Substance: EFMOROCTOCOG ALFA
     Indication: Haemorrhage
     Dosage: 1200 UNITS (1080-1320) SLOW IV TWICE WEEKLY
     Route: 042
     Dates: start: 202211
  4. ELOCTATE [Suspect]
     Active Substance: EFMOROCTOCOG ALFA
     Indication: Haemorrhage
     Dosage: 1200 UNITS (1080-1320) SLOW IV TWICE WEEKLY
     Route: 042
     Dates: start: 202211
  5. ELOCTATE [Suspect]
     Active Substance: EFMOROCTOCOG ALFA
     Dosage: 1200 UNITS (1080-1320) AS NEEDED
     Route: 042
     Dates: start: 202211
  6. ELOCTATE [Suspect]
     Active Substance: EFMOROCTOCOG ALFA
     Dosage: 1200 UNITS (1080-1320) AS NEEDED
     Route: 042
     Dates: start: 202211

REACTIONS (2)
  - Haemorrhage [Unknown]
  - Drug ineffective [Unknown]
